FAERS Safety Report 6121419-7 (Version None)
Quarter: 2009Q1

REPORT INFORMATION
  Report Type: 
  Country: None (occurrence: None)
  Receive Date: 20090313
  Receipt Date: 20090313
  Transmission Date: 20090719
  Serious: Yes (Hospitalization)
  Sender: FDA-Public Use
  Company Number: None

PATIENT
  Age: 60 Year
  Sex: Male
  Weight: 53.978 kg

DRUGS (2)
  1. VELCADE [Suspect]
     Dosage: 3.5MG D1,4,8,11 Q21DAY IV
     Route: 042
  2. ALCAR (DEXAMETHASONE-COMMERCIAL) [Suspect]
     Dosage: 500MG 3 TABS BID PO
     Route: 048

REACTIONS (4)
  - BODY TEMPERATURE INCREASED [None]
  - CHEST PAIN [None]
  - CHILLS [None]
  - INFECTION [None]
